FAERS Safety Report 18213618 (Version 1)
Quarter: 2020Q3

REPORT INFORMATION
  Report Type: Spontaneous
  Country: US (occurrence: US)
  Receive Date: 20200831
  Receipt Date: 20200831
  Transmission Date: 20201103
  Serious: Yes (Other)
  Sender: FDA-Public Use
  Company Number: None

PATIENT
  Age: 73 Year
  Sex: Male
  Weight: 31.43 kg

DRUGS (3)
  1. XTANDI [Concomitant]
     Active Substance: ENZALUTAMIDE
  2. TRAMADOL. [Concomitant]
     Active Substance: TRAMADOL
  3. JADENU [Suspect]
     Active Substance: DEFERASIROX
     Indication: PROSTATE CANCER
     Route: 048
     Dates: start: 20200720

REACTIONS (2)
  - Diarrhoea [None]
  - Decreased appetite [None]

NARRATIVE: CASE EVENT DATE: 20200831
